FAERS Safety Report 20350843 (Version 3)
Quarter: 2022Q2

REPORT INFORMATION
  Report Type: Report from Study
  Country: PT (occurrence: PT)
  Receive Date: 20220119
  Receipt Date: 20220411
  Transmission Date: 20220721
  Serious: Yes (Other)
  Sender: FDA-Public Use
  Company Number: PT-AMGEN-PRTCT2022004515

PATIENT
  Age: 56 Year
  Sex: Male

DRUGS (11)
  1. PANITUMUMAB [Suspect]
     Active Substance: PANITUMUMAB
     Indication: Colorectal cancer metastatic
     Dosage: 480 MILLIGRAM, Q2WK
     Route: 042
     Dates: start: 20210901, end: 20211020
  2. BEVACIZUMAB [Suspect]
     Active Substance: BEVACIZUMAB
     Indication: Colorectal cancer metastatic
     Dosage: 465 MILLIGRAM, Q2WK
     Route: 042
     Dates: start: 20200811, end: 20210216
  3. IRINOTECAN [Suspect]
     Active Substance: IRINOTECAN
     Indication: Colorectal cancer metastatic
     Dosage: 340 MILLIGRAM, Q2WK
     Route: 042
     Dates: start: 20210901, end: 20211020
  4. LEUCOVORIN [Suspect]
     Active Substance: LEUCOVORIN
     Indication: Colorectal cancer metastatic
     Dosage: 410 MILLIGRAM, Q2WK
     Route: 042
     Dates: start: 20200811, end: 20210216
  5. LEUCOVORIN [Suspect]
     Active Substance: LEUCOVORIN
     Dosage: 380 MILLIGRAM, Q2WK
     Route: 042
     Dates: start: 20210901, end: 20211020
  6. FLUOROURACIL [Suspect]
     Active Substance: FLUOROURACIL
     Indication: Colorectal cancer metastatic
     Dosage: 820 MILLIGRAM, Q2WK
     Route: 040
     Dates: start: 20200811, end: 20210216
  7. FLUOROURACIL [Suspect]
     Active Substance: FLUOROURACIL
     Dosage: 760 MILLIGRAM, Q2WK
     Route: 040
     Dates: start: 20210901, end: 20211020
  8. FLUOROURACIL [Suspect]
     Active Substance: FLUOROURACIL
     Dosage: 4920 MILLIGRAM, Q2WK
     Route: 041
     Dates: start: 20200811, end: 20210216
  9. FLUOROURACIL [Suspect]
     Active Substance: FLUOROURACIL
     Dosage: 4500 MILLIGRAM, Q2WK
     Route: 041
     Dates: start: 20210901
  10. FLUOROURACIL [Suspect]
     Active Substance: FLUOROURACIL
     Dosage: 3900 MILLIGRAM, Q2WK
     Route: 041
     Dates: end: 20211020
  11. OXALIPLATIN [Suspect]
     Active Substance: OXALIPLATIN
     Indication: Colorectal cancer metastatic
     Dosage: 174.25 MILLIGRAM, Q2WK
     Route: 042
     Dates: start: 20200811, end: 20210216

REACTIONS (1)
  - Blood bilirubin increased [Unknown]

NARRATIVE: CASE EVENT DATE: 20211229
